FAERS Safety Report 5729642-8 (Version None)
Quarter: 2008Q2

REPORT INFORMATION
  Report Type: 
  Country: None (occurrence: None)
  Receive Date: 20080506
  Receipt Date: 20080430
  Transmission Date: 20081010
  Serious: Yes (Other)
  Sender: FDA-Public Use
  Company Number: DE-ALLERGAN-0805219US

PATIENT
  Sex: Female

DRUGS (4)
  1. BOTOX [Suspect]
     Indication: CEREBRAL PALSY
     Dosage: 600 UNITS, SINGLE
     Route: 030
     Dates: start: 20080411, end: 20080411
  2. BOTOX [Suspect]
     Dosage: UNK, SINGLE
     Route: 030
     Dates: start: 20080411, end: 20080411
  3. BOTOX [Suspect]
     Dosage: UNK, SINGLE
     Route: 030
     Dates: start: 20080411, end: 20080411
  4. BOTOX [Suspect]
     Dosage: 165 UNITS, SINGLE
     Route: 030

REACTIONS (2)
  - EYELID PTOSIS [None]
  - MOVEMENT DISORDER [None]
